FAERS Safety Report 8175937 (Version 2)
Quarter: 2012Q4

REPORT INFORMATION
  Report Type: 
  Country: DE (occurrence: DE)
  Receive Date: 20111011
  Receipt Date: 20121227
  Transmission Date: 20130627
  Serious: Yes (Hospitalization, Other)
  Sender: FDA-Public Use
  Company Number: PHHY2011DE86640

PATIENT
  Weight: 57 kg

DRUGS (2)
  1. GILENYA [Suspect]
     Indication: RELAPSING-REMITTING MULTIPLE SCLEROSIS
     Dosage: 0.5 mg/day
     Route: 048
     Dates: start: 20101018, end: 20101110
  2. COPAXONE [Concomitant]
     Indication: RELAPSING-REMITTING MULTIPLE SCLEROSIS
     Dosage: 20 mg, per day
     Route: 058
     Dates: start: 20101022

REACTIONS (17)
  - Cerebral haemorrhage [Recovered/Resolved]
  - Memory impairment [Recovered/Resolved]
  - Visual impairment [Recovered/Resolved]
  - Dizziness [Unknown]
  - Headache [Unknown]
  - Nausea [Unknown]
  - Confusional state [Recovered/Resolved]
  - Hemianopia [Recovered/Resolved]
  - Cerebrovascular accident [Unknown]
  - Grand mal convulsion [Recovered/Resolved]
  - Disorientation [Recovered/Resolved]
  - Agitation [Recovered/Resolved]
  - Macular oedema [Unknown]
  - Multiple sclerosis relapse [Unknown]
  - Blood creatine phosphokinase increased [Unknown]
  - White blood cell count increased [Unknown]
  - Blood glucose increased [Unknown]
